FAERS Safety Report 24976874 (Version 1)
Quarter: 2025Q1

REPORT INFORMATION
  Report Type: Report from Study
  Country: US (occurrence: US)
  Receive Date: 20250217
  Receipt Date: 20250217
  Transmission Date: 20250408
  Serious: Yes (Other)
  Sender: EMD SERONO INC
  Company Number: US-Merck Healthcare KGaA-2025007114

PATIENT
  Sex: Female
  Weight: 76 kg

DRUGS (2)
  1. MAVENCLAD [Suspect]
     Active Substance: CLADRIBINE
     Indication: Multiple sclerosis
  2. MAVENCLAD [Suspect]
     Active Substance: CLADRIBINE

REACTIONS (3)
  - Weight increased [Unknown]
  - Memory impairment [Unknown]
  - Condition aggravated [Unknown]
